FAERS Safety Report 15245574 (Version 1)
Quarter: 2018Q3

REPORT INFORMATION
  Report Type: Spontaneous
  Country: DE (occurrence: DE)
  Receive Date: 20180806
  Receipt Date: 20180806
  Transmission Date: 20181010
  Serious: Yes (Other)
  Sender: FDA-Public Use
  Company Number: PHHY2018DE057302

PATIENT
  Age: 60 Year
  Sex: Female

DRUGS (5)
  1. BRILIQUE [Suspect]
     Active Substance: TICAGRELOR
     Indication: RED BLOOD CELL ABNORMALITY
     Dosage: UNK
     Route: 048
  2. DELIX (RAMIPRIL) [Concomitant]
     Active Substance: RAMIPRIL
     Indication: HYPERTENSION
     Dosage: UNK
     Route: 065
  3. SIMVASTATIN. [Concomitant]
     Active Substance: SIMVASTATIN
     Indication: PROTEINURIA
     Dosage: UNK
     Route: 065
  4. EMPAGLIFLOZIN [Concomitant]
     Active Substance: EMPAGLIFLOZIN
     Indication: DIABETES MELLITUS
     Dosage: UNK
     Route: 065
  5. ASPIRIN. [Suspect]
     Active Substance: ASPIRIN
     Indication: RED BLOOD CELL ABNORMALITY
     Dosage: UNK
     Route: 065

REACTIONS (1)
  - Gastrointestinal haemorrhage [Recovered/Resolved]
